FAERS Safety Report 8794920 (Version 1)
Quarter: 2012Q4

REPORT INFORMATION
  Report Type: 
  Country: CH (occurrence: CH)
  Receive Date: 20120917
  Receipt Date: 20120917
  Transmission Date: 20130627
  Serious: Yes (Hospitalization)
  Sender: FDA-Public Use
  Company Number: CH-ROCHE-1116913

PATIENT
  Age: 47 Year
  Sex: Female

DRUGS (7)
  1. VALIUM [Suspect]
     Indication: PRODUCT USED FOR UNKNOWN INDICATION
     Route: 048
     Dates: end: 20120312
  2. ZOLPIDEM [Suspect]
     Indication: PRODUCT USED FOR UNKNOWN INDICATION
     Dosage: reported as Zolpidem Winthrop
     Route: 048
  3. METHADONE HYDROCHLORIDE [Suspect]
     Indication: PRODUCT USED FOR UNKNOWN INDICATION
     Dosage: reported as Methadon Streuli
     Route: 048
     Dates: end: 20120312
  4. TRAMAL [Suspect]
     Indication: PRODUCT USED FOR UNKNOWN INDICATION
     Route: 048
     Dates: end: 20120312
  5. PETHIDINE [Suspect]
     Indication: PRODUCT USED FOR UNKNOWN INDICATION
     Dosage: single dose
     Route: 065
     Dates: start: 20120311, end: 20120311
  6. ALDACTONE [Concomitant]
     Route: 048
     Dates: end: 20120312
  7. TOREM [Concomitant]
     Route: 048

REACTIONS (7)
  - Hyperreflexia [Unknown]
  - Agitation [Recovered/Resolved]
  - Confusional state [Recovered/Resolved]
  - Somnolence [Unknown]
  - Ataxia [Unknown]
  - Orthostatic hypotension [None]
  - Renal failure acute [None]
